FAERS Safety Report 23991429 (Version 2)
Quarter: 2024Q3

REPORT INFORMATION
  Report Type: Spontaneous
  Country: US (occurrence: US)
  Receive Date: 20240619
  Receipt Date: 20240722
  Transmission Date: 20241017
  Serious: No
  Sender: ORGANON
  Company Number: US-ORGANON-O2404USA003472

PATIENT
  Age: 24 Year
  Sex: Female
  Weight: 91.62 kg

DRUGS (2)
  1. NEXPLANON [Suspect]
     Active Substance: ETONOGESTREL
     Indication: Contraception
     Dosage: 1 IMPLANT (68 MG) (LEFT UPPER ARM)
     Route: 059
     Dates: start: 20240326, end: 20240529
  2. VYVANSE [Concomitant]
     Active Substance: LISDEXAMFETAMINE DIMESYLATE

REACTIONS (3)
  - Hypoaesthesia [Not Recovered/Not Resolved]
  - Paraesthesia [Not Recovered/Not Resolved]
  - Device placement issue [Recovered/Resolved]

NARRATIVE: CASE EVENT DATE: 20240326
